FAERS Safety Report 4720621-6 (Version None)
Quarter: 2005Q3

REPORT INFORMATION
  Report Type: 
  Country: None (occurrence: None)
  Receive Date: 20050721
  Receipt Date: 20050614
  Transmission Date: 20060218
  Serious: Yes (Hospitalization)
  Sender: FDA-Public Use
  Company Number: HQWYE508816JUN05

PATIENT
  Sex: Female

DRUGS (7)
  1. ENBREL [Suspect]
     Indication: RHEUMATOID ARTHRITIS
     Route: 058
     Dates: start: 20050527, end: 20050607
  2. PREDNISOLONE [Concomitant]
  3. PIROXICAM [Concomitant]
  4. LOXOPROFEN [Concomitant]
  5. CIMETIDINE [Concomitant]
  6. VITAMIN B6 [Concomitant]
  7. UNSPECIFIED MEDICATION [Concomitant]

REACTIONS (2)
  - DRUG ERUPTION [None]
  - URTICARIA GENERALISED [None]
